FAERS Safety Report 9130258 (Version 1)
Quarter: 2013Q1

REPORT INFORMATION
  Report Type: Spontaneous
  Country: IT (occurrence: IT)
  Receive Date: 20130228
  Receipt Date: 20130228
  Transmission Date: 20140127
  Serious: Yes (Other)
  Sender: FDA-Public Use
  Company Number: IT-ALLERGAN-1302747US

PATIENT
  Age: 69 Year
  Sex: Female

DRUGS (1)
  1. BOTULINUM TOXIN TYPE A UNK [Suspect]
     Indication: TORTICOLLIS
     Dosage: 240 UNITS, SINGLE
     Route: 030

REACTIONS (2)
  - Throat tightness [Recovered/Resolved]
  - Rash generalised [Recovered/Resolved]
